FAERS Safety Report 5502330-9 (Version None)
Quarter: 2007Q4

REPORT INFORMATION
  Report Type: 
  Country: None (occurrence: None)
  Receive Date: 20071030
  Receipt Date: 20071021
  Transmission Date: 20080405
  Serious: Yes (Hospitalization, Other)
  Sender: FDA-Public Use
  Company Number: US-AMGEN-US195605

PATIENT
  Sex: Female

DRUGS (1)
  1. ENBREL [Suspect]
     Indication: JUVENILE ARTHRITIS
     Route: 058
     Dates: start: 19990501

REACTIONS (16)
  - CONVULSION [None]
  - DIZZINESS [None]
  - DYSPNOEA [None]
  - HIP ARTHROPLASTY [None]
  - INCISION SITE COMPLICATION [None]
  - INCISION SITE ERYTHEMA [None]
  - INCISION SITE HAEMORRHAGE [None]
  - INJECTION SITE BRUISING [None]
  - KNEE OPERATION [None]
  - OBLITERATIVE BRONCHIOLITIS [None]
  - OSTEOARTHRITIS [None]
  - POST PROCEDURAL INFECTION [None]
  - POSTOPERATIVE WOUND COMPLICATION [None]
  - RED BLOOD CELL COUNT DECREASED [None]
  - TONGUE INJURY [None]
  - WHITE BLOOD CELL COUNT DECREASED [None]
